FAERS Safety Report 10024395 (Version 3)
Quarter: 2014Q2

REPORT INFORMATION
  Report Type: Spontaneous
  Country: US (occurrence: None)
  Receive Date: 20140318
  Receipt Date: 20140514
  Transmission Date: 20141212
  Serious: Yes (Other)
  Sender: FDA-Public Use
  Company Number: 2014-US-002746

PATIENT
  Age: 55 Year
  Sex: Female
  Weight: 64.4 kg

DRUGS (16)
  1. XYREM [Suspect]
     Indication: NARCOLEPSY
     Route: 048
     Dates: start: 201307, end: 2013
  2. XYREM [Suspect]
     Indication: CATAPLEXY
     Route: 048
     Dates: start: 201307, end: 2013
  3. SINGULAIR [Suspect]
     Indication: ASTHMA
  4. SINGULAIR [Suspect]
     Indication: ASTHMA
  5. SINGULAIR [Suspect]
     Indication: MULTIPLE ALLERGIES
  6. VYVANSE [Suspect]
     Route: 048
  7. ADVAIR (FLUTICASONE PROPIONATE, SALMETEROL XINAFOATE) [Concomitant]
  8. ZYRTEC (CETIRIZINE HYDROCHLORIDE) [Concomitant]
  9. GABAPENTIN (GABAPENTIN) [Concomitant]
  10. THEOPHYLLINE [Concomitant]
  11. DILTIAZEM (DILTIAZEM HYDROCHLORIDE) [Concomitant]
  12. PANTOPRAZOLE (PANTOPRAZOLE SODIUM SESQUIHYDRATE) [Concomitant]
  13. RELPAX (ELETRIPTAN HYDROBROMIDE) [Concomitant]
  14. EPIPEN (EPINEPHRINE) [Concomitant]
  15. PREDNISONE [Concomitant]
  16. BENADRYL (DIPHENHYDRAMINE HYDROCHLORIDE) [Concomitant]

REACTIONS (10)
  - Foot fracture [None]
  - Scratch [None]
  - Dizziness [None]
  - Pain [None]
  - Disturbance in attention [None]
  - Sjogren^s syndrome [None]
  - Immune system disorder [None]
  - Memory impairment [None]
  - Hallucination [None]
  - Abnormal dreams [None]
